FAERS Safety Report 14136891 (Version 2)
Quarter: 2018Q1

REPORT INFORMATION
  Report Type: Report from Study
  Country: US (occurrence: US)
  Receive Date: 20171027
  Receipt Date: 20180123
  Transmission Date: 20180508
  Serious: No
  Sender: FDA-Public Use
  Company Number: US-AMGEN-USASL2017158229

PATIENT
  Sex: Male
  Weight: 125.35 kg

DRUGS (9)
  1. FLONASE [Concomitant]
     Active Substance: FLUTICASONE PROPIONATE
     Dosage: 50 MUG, (1 SPRAY EACH NOSTIL) QD
     Dates: start: 20170313
  2. REPATHA [Suspect]
     Active Substance: EVOLOCUMAB
     Indication: TYPE IIA HYPERLIPIDAEMIA
     Dosage: 140 MG, Q2WK
     Route: 058
     Dates: start: 20170421
  3. BYSTOLIC [Concomitant]
     Active Substance: NEBIVOLOL HYDROCHLORIDE
     Dosage: 2.5 MG, QD
     Route: 048
     Dates: start: 20170313
  4. NEXIUM [Concomitant]
     Active Substance: ESOMEPRAZOLE MAGNESIUM
     Dosage: 40 MG, BID
     Route: 048
     Dates: start: 20160822
  5. BETAMETHASONE. [Concomitant]
     Active Substance: BETAMETHASONE
     Dosage: 0.05 %, (APPLY TO AFFECTED AREA) BID
     Dates: start: 20170317
  6. CEFTIN [Concomitant]
     Active Substance: CEFUROXIME AXETIL
     Dosage: 500 MG, BID
     Dates: start: 20161024
  7. XANAX [Concomitant]
     Active Substance: ALPRAZOLAM
     Dosage: 1 MG, BID
     Route: 048
     Dates: start: 20170310
  8. LOTRISONE [Concomitant]
     Active Substance: BETAMETHASONE DIPROPIONATE\CLOTRIMAZOLE
     Dosage: 1% - 0.05%, APPLY TO AFFECTED AREA BID, AS NECESSARY
     Dates: start: 20170421
  9. EPIPEN [Concomitant]
     Active Substance: EPINEPHRINE
     Dosage: 0.3 MG, UNK
     Dates: start: 20160429

REACTIONS (1)
  - Muscle spasms [Unknown]
